FAERS Safety Report 14374720 (Version 1)
Quarter: 2018Q1

REPORT INFORMATION
  Report Type: Spontaneous
  Country: US (occurrence: US)
  Receive Date: 20180111
  Receipt Date: 20180111
  Transmission Date: 20180509
  Serious: No
  Sender: FDA-Public Use
  Company Number: US-TEVA-825153USA

PATIENT
  Sex: Female

DRUGS (1)
  1. OLOPATADINE. [Suspect]
     Active Substance: OLOPATADINE
     Indication: DRY EYE
     Dosage: 5 MG / 2.5 ML
     Route: 047
     Dates: start: 20170628

REACTIONS (6)
  - Drug ineffective [Unknown]
  - Erythema [Recovering/Resolving]
  - Eye pain [Recovering/Resolving]
  - Ocular hyperaemia [Recovering/Resolving]
  - Skin burning sensation [Recovering/Resolving]
  - Eye irritation [Recovering/Resolving]

NARRATIVE: CASE EVENT DATE: 20170628
